FAERS Safety Report 16358144 (Version 2)
Quarter: 2019Q2

REPORT INFORMATION
  Report Type: Spontaneous
  Country: US (occurrence: US)
  Receive Date: 20190527
  Receipt Date: 20190625
  Transmission Date: 20190711
  Serious: Yes (Other)
  Sender: FDA-Public Use
  Company Number: US-PFIZER INC-2019219002

PATIENT
  Age: 61 Year
  Sex: Female

DRUGS (1)
  1. TOVIAZ [Suspect]
     Active Substance: FESOTERODINE FUMARATE
     Indication: POLYURIA
     Dosage: 8 MG, 1X/DAY
     Dates: start: 2017

REACTIONS (2)
  - Urinary incontinence [Not Recovered/Not Resolved]
  - Ectopic pregnancy [Unknown]
